FAERS Safety Report 10253914 (Version 1)
Quarter: 2014Q2

REPORT INFORMATION
  Report Type: Spontaneous
  Country: DE (occurrence: DE)
  Receive Date: 20140623
  Receipt Date: 20140623
  Transmission Date: 20141212
  Serious: Yes (Congenital Anomaly)
  Sender: FDA-Public Use
  Company Number: GXKR2014DE002351

PATIENT
  Sex: Female
  Weight: 2.7 kg

DRUGS (3)
  1. RANITIDINE [Suspect]
     Indication: DYSPEPSIA
     Dosage: IF REQUIRED; DOSAGE UNKNOWN (5.-8. GESTATIONAL WEEK)
     Route: 064
  2. PANTOPRAZOLE [Suspect]
     Indication: DYSPEPSIA
     Dosage: 20 [MG/D ]/ IF REQUIRED, ABOUT 3 TO 4 TIMES A WEEK (10.-36.3 GESTATIONAL WEEK)
     Route: 064
     Dates: end: 20140115
  3. VITAMIN B KOMPLEX + FOLSAEURE [Concomitant]
     Indication: PROPHYLAXIS OF NEURAL TUBE DEFECT
     Dosage: 0.4 [MG/D ] (5.-36.3 GESTATIONAL WEEK)
     Route: 064

REACTIONS (1)
  - Haemangioma congenital [Unknown]
